FAERS Safety Report 23530616 (Version 1)
Quarter: 2024Q1

REPORT INFORMATION
  Report Type: Spontaneous
  Country: CN (occurrence: CN)
  Receive Date: 20240216
  Receipt Date: 20240216
  Transmission Date: 20240409
  Serious: Yes (Other)
  Sender: FDA-Public Use
  Company Number: CN-SA-SAC20240214000138

PATIENT
  Age: 67 Year
  Sex: Male
  Weight: 71.5 kg

DRUGS (2)
  1. OXALIPLATIN [Suspect]
     Active Substance: OXALIPLATIN
     Indication: Colon cancer
     Dosage: 150 MG, QD
     Route: 041
     Dates: start: 20240126, end: 20240126
  2. CETUXIMAB [Suspect]
     Active Substance: CETUXIMAB
     Indication: Colon cancer
     Dosage: 900 MG, QD
     Route: 041
     Dates: start: 20240126, end: 20240126

REACTIONS (5)
  - Depressed level of consciousness [Recovering/Resolving]
  - Palpitations [Recovering/Resolving]
  - Sinus rhythm [Recovering/Resolving]
  - Drug hypersensitivity [Recovering/Resolving]
  - Chest discomfort [Recovering/Resolving]

NARRATIVE: CASE EVENT DATE: 20240126
